FAERS Safety Report 4340374-3 (Version None)
Quarter: 2004Q2

REPORT INFORMATION
  Report Type: 
  Country: None (occurrence: None)
  Receive Date: 20040416
  Receipt Date: 20040217
  Transmission Date: 20050107
  Serious: No
  Sender: FDA-Public Use
  Company Number: 200410035BBE

PATIENT
  Age: 37 Year
  Sex: Female

DRUGS (1)
  1. BAYRHO-D [Suspect]
     Dosage: 300 UG, INTRAMUSCULAR
     Route: 030
     Dates: start: 20040211

REACTIONS (4)
  - DEHYDRATION [None]
  - DIARRHOEA [None]
  - NAUSEA [None]
  - VOMITING [None]
